FAERS Safety Report 23799184 (Version 1)
Quarter: 2024Q2

REPORT INFORMATION
  Report Type: Spontaneous
  Country: NO (occurrence: NO)
  Receive Date: 20240430
  Receipt Date: 20240430
  Transmission Date: 20240715
  Serious: Yes (Hospitalization)
  Sender: FDA-Public Use
  Company Number: None

PATIENT
  Age: 45 Year
  Sex: Male

DRUGS (2)
  1. COSENTYX [Suspect]
     Active Substance: SECUKINUMAB
     Indication: Ankylosing spondylitis
     Dosage: UNK (150MG HVER 4. UKE, OPPSTARTET MED INJEKSJON HVER UKE I 5 UKE FRA 10.02.24, DERETTER HVER 4. UKE
     Route: 058
     Dates: start: 20240210
  2. HYRIMOZ [Suspect]
     Active Substance: ADALIMUMAB-ADAZ
     Indication: Ankylosing spondylitis
     Dosage: 40 MG, BIW
     Route: 058
     Dates: start: 20231129, end: 20240107

REACTIONS (4)
  - Balance disorder [Recovering/Resolving]
  - Cold sweat [Recovering/Resolving]
  - Headache [Recovering/Resolving]
  - Tremor [Recovering/Resolving]

NARRATIVE: CASE EVENT DATE: 20240321
